FAERS Safety Report 8764652 (Version 3)
Quarter: 2014Q2

REPORT INFORMATION
  Report Type: Spontaneous
  Country: FR (occurrence: FR)
  Receive Date: 20120831
  Receipt Date: 20131017
  Transmission Date: 20141212
  Serious: Yes (Hospitalization, Other)
  Sender: FDA-Public Use
  Company Number: FR-PFIZER INC-2012210611

PATIENT
  Age: 59 Year
  Sex: Female

DRUGS (4)
  1. TAHOR [Suspect]
     Indication: DYSLIPIDAEMIA
     Dosage: 40 MG, DAILY
     Route: 048
  2. ATENOLOL [Suspect]
     Dosage: 100 MG, 2X/DAY
     Route: 048
  3. FLECAINE [Suspect]
     Indication: ARRHYTHMIA
     Dosage: 100 MG, 2X/DAY
     Route: 048
  4. PROZAC [Suspect]
     Indication: DEPRESSION
     Dosage: 1 DF, DAILY
     Route: 048

REACTIONS (10)
  - Cerebral vasoconstriction [Recovered/Resolved]
  - Cerebral haemorrhage [Unknown]
  - Malaise [Recovered/Resolved]
  - Fatigue [Recovered/Resolved]
  - Inflammation [Unknown]
  - Asthenia [Unknown]
  - Viral infection [Unknown]
  - Rash [Unknown]
  - Chlamydia test positive [Recovered/Resolved]
  - Varicella virus test positive [Recovered/Resolved]
